FAERS Safety Report 22735472 (Version 4)
Quarter: 2024Q3

REPORT INFORMATION
  Report Type: Report from Study
  Country: CA (occurrence: CA)
  Receive Date: 20230721
  Receipt Date: 20240716
  Transmission Date: 20241017
  Serious: Yes (Other)
  Sender: JOHNSON AND JOHNSON
  Company Number: CA-JNJFOC-20230252883

PATIENT
  Age: 71 Year
  Sex: Male
  Weight: 113 kg

DRUGS (3)
  1. REMICADE [Suspect]
     Active Substance: INFLIXIMAB
     Indication: Spondyloarthropathy
     Dosage: EXPIRY DATE: SEP-2025
     Route: 041
     Dates: start: 20090630
  2. REMICADE [Suspect]
     Active Substance: INFLIXIMAB
     Indication: Colitis ulcerative
  3. REMICADE [Suspect]
     Active Substance: INFLIXIMAB
     Indication: Rheumatoid arthritis

REACTIONS (10)
  - Clostridium difficile infection [Unknown]
  - Tremor [Not Recovered/Not Resolved]
  - Scapula fracture [Recovering/Resolving]
  - Fall [Unknown]
  - Sleep disorder [Unknown]
  - Diabetic foot [Not Recovered/Not Resolved]
  - Muscular weakness [Unknown]
  - Postoperative wound complication [Unknown]
  - Product dose omission issue [Unknown]
  - Bedridden [Unknown]

NARRATIVE: CASE EVENT DATE: 20230101
